FAERS Safety Report 4682976-0 (Version None)
Quarter: 2005Q2

REPORT INFORMATION
  Report Type: 
  Country: None (occurrence: None)
  Receive Date: 20050602
  Receipt Date: 20050406
  Transmission Date: 20051028
  Serious: No
  Sender: FDA-Public Use
  Company Number: USA050290574

PATIENT
  Age: 28 Year
  Sex: Male

DRUGS (2)
  1. CYMBALTA [Suspect]
     Indication: DEPRESSION
     Dosage: 30 MG DAY
  2. CLONAZEPAM [Concomitant]

REACTIONS (5)
  - AGITATION [None]
  - CENTRAL NERVOUS SYSTEM STIMULATION [None]
  - MANIA [None]
  - PARANOIA [None]
  - SUICIDAL IDEATION [None]
